FAERS Safety Report 9746102 (Version 2)
Quarter: 2013Q4

REPORT INFORMATION
  Report Type: Spontaneous
  Country: US (occurrence: US)
  Receive Date: 20131211
  Receipt Date: 20131211
  Transmission Date: 20140711
  Serious: Yes (Other)
  Sender: FDA-Public Use
  Company Number: US-BMSGILMSD-2009-0024495

PATIENT
  Age: 40 Year
  Sex: Male
  Weight: 74.16 kg

DRUGS (4)
  1. ATRIPLA [Suspect]
     Indication: HIV INFECTION
     Dates: start: 20090904, end: 20090922
  2. ASA [Concomitant]
     Indication: PERIPHERAL VASCULAR DISORDER
     Route: 048
     Dates: start: 20090313
  3. MVI [Concomitant]
     Route: 048
     Dates: start: 20090313
  4. FLUCONAZOLE [Concomitant]
     Indication: ONYCHOMYCOSIS
     Route: 048
     Dates: start: 20090918

REACTIONS (1)
  - Suicidal ideation [Recovered/Resolved]
